FAERS Safety Report 17913271 (Version 1)
Quarter: 2020Q2

REPORT INFORMATION
  Report Type: Spontaneous
  Country: US (occurrence: US)
  Receive Date: 20200618
  Receipt Date: 20200618
  Transmission Date: 20200714
  Serious: No
  Sender: FDA-Public Use
  Company Number: US-ETHYPHARM-202001001

PATIENT
  Age: 73 Year
  Sex: Male

DRUGS (1)
  1. BUPRENORPHINE. [Suspect]
     Active Substance: BUPRENORPHINE
     Indication: DRUG DEPENDENCE
     Dosage: 8 MG THREE TIMES PER DAY; EXP. DATE: 30-JUL-2021
     Route: 060
     Dates: start: 201811

REACTIONS (1)
  - Tongue discomfort [Unknown]

NARRATIVE: CASE EVENT DATE: 202005
